FAERS Safety Report 10801831 (Version 1)
Quarter: 2015Q1

REPORT INFORMATION
  Report Type: Report from Study
  Country: JP (occurrence: JP)
  Receive Date: 20150217
  Receipt Date: 20150217
  Transmission Date: 20150721
  Serious: Yes (Other)
  Sender: FDA-Public Use
  Company Number: JP-BAYER-2015-018033

PATIENT
  Age: 29 Year
  Sex: Female

DRUGS (4)
  1. RITODRINE HYDROCHLORIDE [Suspect]
     Active Substance: RITODRINE HYDROCHLORIDE
     Indication: THREATENED LABOUR
     Dosage: UNK
     Route: 042
  2. MAGNESIUM SULFATE. [Suspect]
     Active Substance: MAGNESIUM SULFATE
     Dosage: UNK
  3. ADALAT [Suspect]
     Active Substance: NIFEDIPINE
     Indication: THREATENED LABOUR
     Route: 048
  4. BETAMETHASONE [Suspect]
     Active Substance: BETAMETHASONE
     Dosage: 12 MG, QD
     Route: 030

REACTIONS (4)
  - Caesarean section [None]
  - Product use issue [None]
  - Pulmonary oedema [None]
  - Exposure during pregnancy [None]
